FAERS Safety Report 6386398-6 (Version None)
Quarter: 2009Q3

REPORT INFORMATION
  Report Type: 
  Country: None (occurrence: None)
  Receive Date: 20090930
  Receipt Date: 20090930
  Transmission Date: 20100115
  Serious: Yes (Life-Threatening, Other)
  Sender: FDA-Public Use
  Company Number: None

PATIENT
  Age: 51 Year
  Sex: Male
  Weight: 79.37 kg

DRUGS (1)
  1. VALTREX [Suspect]
     Indication: HERPES VIRUS INFECTION
     Dosage: 1000MG 2 XS DAILY PO
     Route: 048
     Dates: start: 20081009, end: 20090929

REACTIONS (4)
  - BALANCE DISORDER [None]
  - CONTUSION [None]
  - PAIN [None]
  - PAIN IN EXTREMITY [None]
